FAERS Safety Report 8483207-6 (Version None)
Quarter: 2012Q3

REPORT INFORMATION
  Report Type: 
  Country: None (occurrence: None)
  Receive Date: 20120702
  Receipt Date: 20120613
  Transmission Date: 20120928
  Serious: Yes (Death, Other)
  Sender: FDA-Public Use
  Company Number: GR-PFIZER INC-2012031975

PATIENT
  Age: 50 Year
  Sex: Male

DRUGS (16)
  1. METHYLPREDNISOLONE [Suspect]
     Indication: CHRONIC LYMPHOCYTIC LEUKAEMIA
     Dosage: UNK
  2. DACARBAZINE [Concomitant]
  3. NAVELBINE [Concomitant]
  4. CYTARABINE [Suspect]
     Indication: CHRONIC LYMPHOCYTIC LEUKAEMIA
  5. FLUDARABINE PHOSPHATE [Suspect]
     Indication: CHRONIC LYMPHOCYTIC LEUKAEMIA
     Dosage: UNK
  6. ETOPOSIDE [Suspect]
     Indication: CHRONIC LYMPHOCYTIC LEUKAEMIA
  7. VINCRISTINE [Suspect]
     Indication: CHRONIC LYMPHOCYTIC LEUKAEMIA
     Dosage: UNK
  8. RITUXIMAB [Concomitant]
  9. BLEOMYCIN [Concomitant]
  10. CISPLATIN [Suspect]
     Indication: CHRONIC LYMPHOCYTIC LEUKAEMIA
     Dosage: UNK
  11. PREDNISOLONE [Concomitant]
  12. IFOSFAMIDE [Concomitant]
  13. DOXORUBICIN HCL [Suspect]
     Indication: CHRONIC LYMPHOCYTIC LEUKAEMIA
  14. CYCLOPHOSPHAMIDE [Concomitant]
  15. VINBLASTINE [Concomitant]
  16. MITOGUAZONE [Concomitant]

REACTIONS (5)
  - MULTI-ORGAN FAILURE [None]
  - EPILEPSY [None]
  - TOXIC ENCEPHALOPATHY [None]
  - DISEASE PROGRESSION [None]
  - CHRONIC LYMPHOCYTIC LEUKAEMIA [None]
